FAERS Safety Report 25791476 (Version 1)
Quarter: 2025Q3

REPORT INFORMATION
  Report Type: Spontaneous
  Country: CN (occurrence: CN)
  Receive Date: 20250911
  Receipt Date: 20250911
  Transmission Date: 20251020
  Serious: Yes (Other)
  Sender: COSETTE PHARMACEUTICALS INC
  Company Number: CN-SA-2025SA263227

PATIENT
  Age: 20 Year
  Sex: Female
  Weight: 50 kg

DRUGS (3)
  1. AMBIEN [Suspect]
     Active Substance: ZOLPIDEM TARTRATE
     Indication: Product used for unknown indication
     Route: 048
     Dates: start: 20250822, end: 20250822
  2. ESCITALOPRAM OXALATE [Suspect]
     Active Substance: ESCITALOPRAM OXALATE
     Indication: Depression
     Dosage: 10 DF
     Route: 048
     Dates: start: 20250822, end: 20250822
  3. IBUPROFEN [Suspect]
     Active Substance: IBUPROFEN
     Indication: Product used for unknown indication
     Dosage: 5 DF
     Route: 048
     Dates: start: 20250822, end: 20250822

REACTIONS (4)
  - Poisoning [Recovering/Resolving]
  - Vomiting [Recovering/Resolving]
  - Contraindicated product administered [Unknown]
  - Overdose [Unknown]

NARRATIVE: CASE EVENT DATE: 20250822
